FAERS Safety Report 19681164 (Version 1)
Quarter: 2021Q3

REPORT INFORMATION
  Report Type: Spontaneous
  Country: GB (occurrence: GB)
  Receive Date: 20210810
  Receipt Date: 20210810
  Transmission Date: 20211014
  Serious: Yes (Life-Threatening, Hospitalization)
  Sender: FDA-Public Use
  Company Number: NVSC2021GB180675

PATIENT
  Age: 72 Year
  Sex: Female

DRUGS (6)
  1. LETROZOLE. [Concomitant]
     Active Substance: LETROZOLE
     Indication: HORMONE RECEPTOR POSITIVE BREAST CANCER
     Dosage: UNK
     Route: 065
     Dates: start: 201811
  2. DENOSUMAB [Concomitant]
     Active Substance: DENOSUMAB
     Indication: HORMONE RECEPTOR POSITIVE BREAST CANCER
     Dosage: 4 DF, QW
     Route: 065
     Dates: start: 201811
  3. RIBOCICLIB. [Suspect]
     Active Substance: RIBOCICLIB
     Indication: HER2 NEGATIVE BREAST CANCER
  4. RIBOCICLIB. [Suspect]
     Active Substance: RIBOCICLIB
     Indication: HORMONE RECEPTOR POSITIVE BREAST CANCER
     Dosage: UNK
     Route: 065
     Dates: start: 201811
  5. LETROZOLE. [Concomitant]
     Active Substance: LETROZOLE
     Indication: HER2 NEGATIVE BREAST CANCER
  6. DENOSUMAB [Concomitant]
     Active Substance: DENOSUMAB
     Indication: HER2 NEGATIVE BREAST CANCER

REACTIONS (1)
  - Colitis [Recovered/Resolved]

NARRATIVE: CASE EVENT DATE: 20191012
